FAERS Safety Report 24578546 (Version 1)
Quarter: 2024Q4

REPORT INFORMATION
  Report Type: Spontaneous
  Country: US (occurrence: US)
  Receive Date: 20241105
  Receipt Date: 20241105
  Transmission Date: 20250115
  Serious: No
  Sender: AJANTA PHARMA USA INC
  Company Number: US-AJANTA-2024AJA00144

PATIENT
  Age: 65 Year
  Sex: Male
  Weight: 150 kg

DRUGS (1)
  1. CHOLESTYRAMINE [Suspect]
     Active Substance: CHOLESTYRAMINE
     Indication: Bile acid malabsorption
     Route: 048
     Dates: start: 20240815

REACTIONS (7)
  - Dry mouth [Unknown]
  - Throat tightness [Unknown]
  - Oropharyngeal discomfort [Unknown]
  - Product taste abnormal [Unknown]
  - Product physical consistency issue [Unknown]
  - Product substitution issue [Unknown]
  - Product use in unapproved indication [Unknown]

NARRATIVE: CASE EVENT DATE: 20240815
